FAERS Safety Report 5701596-X (Version None)
Quarter: 2008Q2

REPORT INFORMATION
  Report Type: 
  Country: None (occurrence: None)
  Receive Date: 20080411
  Receipt Date: 20080327
  Transmission Date: 20081010
  Serious: Yes (Other)
  Sender: FDA-Public Use
  Company Number: US-SANOFI-SYNTHELABO-A03200800829

PATIENT
  Age: 23 Year
  Sex: Male

DRUGS (5)
  1. LAMICTAL [Concomitant]
     Indication: BIPOLAR DISORDER
     Route: 065
     Dates: start: 20070411
  2. LAMICTAL [Concomitant]
     Indication: AFFECTIVE DISORDER
     Route: 065
     Dates: start: 20070411
  3. SEROQUEL [Concomitant]
     Indication: BIPOLAR DISORDER
     Route: 065
     Dates: start: 20070411
  4. SEROQUEL [Concomitant]
     Indication: AFFECTIVE DISORDER
     Route: 065
     Dates: start: 20070411
  5. AMBIEN [Suspect]
     Indication: INSOMNIA
     Dosage: FIVE TO SEVEN (OR MORE) 10 MG TABLETS PER NIGHT
     Route: 048
     Dates: start: 20070411

REACTIONS (3)
  - DRUG ABUSE [None]
  - PYROMANIA [None]
  - SOMNAMBULISM [None]
